FAERS Safety Report 6084837-1 (Version None)
Quarter: 2009Q1

REPORT INFORMATION
  Report Type: 
  Country: None (occurrence: None)
  Receive Date: 20090218
  Receipt Date: 20090206
  Transmission Date: 20090719
  Serious: Yes (Hospitalization)
  Sender: FDA-Public Use
  Company Number: 2009000223

PATIENT
  Sex: Female

DRUGS (13)
  1. ERLOTINIB    (ERLOTINIB) (TABLET) (ERLOTINIB) [Suspect]
     Indication: NON-SMALL CELL LUNG CANCER
     Dosage: ORAL
     Route: 048
  2. CISPLATIN [Concomitant]
  3. DOCETAXEL (DOCETAXEL) (INJECTION) [Concomitant]
  4. ASPIRIN [Concomitant]
  5. ATENOLOL [Concomitant]
  6. CALCIUM (CALCIUM) [Concomitant]
  7. DIOVAN [Concomitant]
  8. CHANTIX [Concomitant]
  9. DEXAMETHASONE TAB [Concomitant]
  10. AMBIEN [Concomitant]
  11. COMPAZINE [Concomitant]
  12. EMEND [Concomitant]
  13. ZOFRAN ODT [Concomitant]

REACTIONS (4)
  - BLOOD CHLORIDE DECREASED [None]
  - BLOOD POTASSIUM INCREASED [None]
  - HYPONATRAEMIA [None]
  - NEUTROPENIA [None]
